FAERS Safety Report 7524143-9 (Version None)
Quarter: 2011Q2

REPORT INFORMATION
  Report Type: 
  Country: None (occurrence: None)
  Receive Date: 20110606
  Receipt Date: 20110527
  Transmission Date: 20111010
  Serious: No
  Sender: FDA-Public Use
  Company Number: US-BIOGENIDEC-2010BI023834

PATIENT
  Sex: Male

DRUGS (2)
  1. TYSABRI [Suspect]
     Indication: MULTIPLE SCLEROSIS
     Route: 042
     Dates: start: 20090831, end: 20100201
  2. TYSABRI [Suspect]
     Route: 042
     Dates: start: 20100501, end: 20110401

REACTIONS (10)
  - COMMUNICATION DISORDER [None]
  - BACK PAIN [None]
  - HERPES ZOSTER [None]
  - MUSCULAR WEAKNESS [None]
  - FALL [None]
  - PAIN IN EXTREMITY [None]
  - POOR QUALITY SLEEP [None]
  - CHILLS [None]
  - GASTROENTERITIS VIRAL [None]
  - CONSTIPATION [None]
